FAERS Safety Report 19846200 (Version 3)
Quarter: 2022Q1

REPORT INFORMATION
  Report Type: Other
  Country: GB (occurrence: GB)
  Receive Date: 20210917
  Receipt Date: 20220215
  Transmission Date: 20220423
  Serious: Yes (Other)
  Sender: FDA-Public Use
  Company Number: None

PATIENT
  Age: 61 Year
  Sex: Female
  Weight: 63.5 kg

DRUGS (12)
  1. NAPROXEN [Suspect]
     Active Substance: NAPROXEN
     Indication: Bursitis
     Dosage: UNK (CANT RECALL SORRY)
     Route: 048
     Dates: start: 20171005, end: 20171102
  2. NAPROXEN [Suspect]
     Active Substance: NAPROXEN
     Dosage: UNK
     Route: 065
  3. AMLODIPINE [Suspect]
     Active Substance: AMLODIPINE BESYLATE
     Indication: Hypertension
     Dosage: UNK
     Route: 048
  4. AMLODIPINE [Suspect]
     Active Substance: AMLODIPINE BESYLATE
     Dosage: UNK
     Route: 065
  5. AMLODIPINE [Suspect]
     Active Substance: AMLODIPINE BESYLATE
     Dosage: UNK, AMLODIPINE MESILATE
     Route: 065
  6. AMLODIPINE [Suspect]
     Active Substance: AMLODIPINE BESYLATE
     Dosage: UNK,  AMLODIPINE MESILATE
     Route: 065
  7. AMLODIPINE [Suspect]
     Active Substance: AMLODIPINE BESYLATE
     Dosage: UNK,  AMLODIPINE MESILATE
     Route: 048
  8. AMLODIPINE [Suspect]
     Active Substance: AMLODIPINE BESYLATE
     Dosage: UNK
     Route: 065
  9. AMOXICILLIN [Suspect]
     Active Substance: AMOXICILLIN
     Indication: Productive cough
     Dosage: UNK (NOT KNOWN BOXES THROWN AWAY)
     Route: 048
     Dates: start: 20171027, end: 20171102
  10. LANSOPRAZOLE [Suspect]
     Active Substance: LANSOPRAZOLE
     Indication: Lower respiratory tract infection
     Dosage: UNK
     Route: 048
     Dates: start: 20171005, end: 20171102
  11. LANSOPRAZOLE [Suspect]
     Active Substance: LANSOPRAZOLE
     Indication: Gastrooesophageal reflux disease
     Dosage: UNK
     Route: 048
     Dates: start: 20171005, end: 20171102
  12. LANSOPRAZOLE [Suspect]
     Active Substance: LANSOPRAZOLE
     Dosage: UNK, PER DAY
     Route: 065

REACTIONS (12)
  - Dehydration [Unknown]
  - Condition aggravated [Unknown]
  - Loss of consciousness [Unknown]
  - Mouth ulceration [Unknown]
  - Nightmare [Recovered/Resolved]
  - Sleep disorder [Recovered/Resolved]
  - Poor quality sleep [Unknown]
  - Diarrhoea [Not Recovered/Not Resolved]
  - Depression [Unknown]
  - Medication error [Unknown]
  - Drug abuse [Unknown]
  - Intentional product misuse [Unknown]

NARRATIVE: CASE EVENT DATE: 20171103
